FAERS Safety Report 9661212 (Version 1)
Quarter: 2013Q4

REPORT INFORMATION
  Report Type: Spontaneous
  Country: US (occurrence: None)
  Receive Date: 20131030
  Receipt Date: 20131030
  Transmission Date: 20140711
  Serious: No
  Sender: FDA-Public Use
  Company Number: 13AE022

PATIENT
  Age: 53 Year
  Sex: Female
  Weight: 58.97 kg

DRUGS (1)
  1. EQUATE IBUPROFEN [Suspect]
     Dates: start: 20131017, end: 20131018

REACTIONS (1)
  - Local swelling [None]
